FAERS Safety Report 9805904 (Version 1)
Quarter: 2014Q1

REPORT INFORMATION
  Report Type: Report from Study
  Country: NL (occurrence: NL)
  Receive Date: 20140109
  Receipt Date: 20140109
  Transmission Date: 20141002
  Serious: Yes (Other)
  Sender: FDA-Public Use
  Company Number: PHHY2014NL001971

PATIENT
  Sex: Male

DRUGS (4)
  1. ZOMETA [Suspect]
     Indication: PROSTATE CANCER METASTATIC
     Dosage: 4 MG/ 100 ML ONCE EVERY 4 WEEKS
     Route: 042
  2. ZOMETA [Suspect]
     Dosage: 4 MG/ 100 ML ONCE EVERY 4 WEEKS
     Route: 042
     Dates: start: 20130628
  3. ZOMETA [Suspect]
     Dosage: 4 MG/ 100 ML ONCE EVERY 4 WEEKS
     Route: 042
     Dates: start: 20131114
  4. ZOMETA [Suspect]
     Dosage: 4 MG/ 100 ML ONCE EVERY 4 WEEKS
     Route: 042
     Dates: start: 20131214, end: 20131214

REACTIONS (1)
  - Terminal state [Unknown]
